FAERS Safety Report 5616426-4 (Version None)
Quarter: 2008Q1

REPORT INFORMATION
  Report Type: 
  Country: None (occurrence: None)
  Receive Date: 20080207
  Receipt Date: 20080129
  Transmission Date: 20080703
  Serious: Yes (Other)
  Sender: FDA-Public Use
  Company Number: US-JNJFOC-20070802206

PATIENT
  Sex: Male
  Weight: 118.84 kg

DRUGS (9)
  1. DURAGESIC-100 [Suspect]
     Indication: PAIN
     Route: 062
  2. LISINOPRIL [Concomitant]
     Indication: HYPERTENSION
     Route: 048
  3. ALLEGRA [Concomitant]
     Indication: MULTIPLE ALLERGIES
     Route: 048
  4. TRICOR [Concomitant]
     Indication: BLOOD CHOLESTEROL
     Route: 048
  5. NIASPAN [Concomitant]
     Indication: BLOOD CHOLESTEROL
     Dosage: 1000 ER
     Route: 048
  6. VYTORIN [Concomitant]
     Indication: BLOOD CHOLESTEROL
     Dosage: 10-40MG
     Route: 048
  7. PROTONIX [Concomitant]
     Indication: GASTROOESOPHAGEAL REFLUX DISEASE
     Route: 048
  8. SINGULAIR [Concomitant]
     Indication: MULTIPLE ALLERGIES
     Route: 048
  9. FLOMAX [Concomitant]
     Indication: DYSURIA
     Route: 048

REACTIONS (8)
  - ASTHMA [None]
  - BLOOD TESTOSTERONE DECREASED [None]
  - DEPRESSION [None]
  - DIABETES MELLITUS [None]
  - FATIGUE [None]
  - HEADACHE [None]
  - INSOMNIA [None]
  - WRONG TECHNIQUE IN DRUG USAGE PROCESS [None]
